FAERS Safety Report 19928437 (Version 2)
Quarter: 2022Q1

REPORT INFORMATION
  Report Type: Report from Study
  Country: JP (occurrence: JP)
  Receive Date: 20211007
  Receipt Date: 20220215
  Transmission Date: 20220423
  Serious: Yes (Hospitalization, Other)
  Sender: FDA-Public Use
  Company Number: JP-VIFOR PHARMA-VIT-2020-12636

PATIENT
  Age: 80 Year
  Sex: Female
  Weight: 49.5 kg

DRUGS (23)
  1. VELPHORO [Suspect]
     Active Substance: SUCROFERRIC OXYHYDROXIDE
     Indication: Hyperphosphataemia
     Route: 048
     Dates: start: 20160805, end: 20161023
  2. VELPHORO [Suspect]
     Active Substance: SUCROFERRIC OXYHYDROXIDE
     Indication: Chronic kidney disease
     Route: 048
     Dates: start: 20161024, end: 20161211
  3. VELPHORO [Suspect]
     Active Substance: SUCROFERRIC OXYHYDROXIDE
     Route: 048
     Dates: start: 20161212, end: 20161225
  4. VELPHORO [Suspect]
     Active Substance: SUCROFERRIC OXYHYDROXIDE
     Route: 048
     Dates: start: 20161226, end: 20170813
  5. VELPHORO [Suspect]
     Active Substance: SUCROFERRIC OXYHYDROXIDE
     Route: 048
     Dates: start: 20170814
  6. IRON SUCROSE [Suspect]
     Active Substance: IRON SUCROSE
     Indication: Product used for unknown indication
     Route: 042
     Dates: start: 20160912, end: 20161031
  7. IRON SUCROSE [Suspect]
     Active Substance: IRON SUCROSE
     Route: 042
     Dates: start: 20161107, end: 20170213
  8. IRON SUCROSE [Suspect]
     Active Substance: IRON SUCROSE
     Route: 042
     Dates: end: 20170213
  9. IRON SUCROSE [Suspect]
     Active Substance: IRON SUCROSE
     Route: 042
     Dates: start: 20170410, end: 20171208
  10. VONOPRAZAN FUMARATE [Concomitant]
     Active Substance: VONOPRAZAN FUMARATE
     Route: 048
  11. CINACALCET HYDROCHLORIDE [Concomitant]
     Active Substance: CINACALCET HYDROCHLORIDE
     Route: 048
  12. LACTULOSE [Concomitant]
     Active Substance: LACTULOSE
     Route: 048
  13. BIXALOMER [Concomitant]
     Active Substance: BIXALOMER
     Indication: Hyperphosphataemia
     Route: 048
  14. CALTAN [Concomitant]
     Active Substance: CALCIUM CARBONATE
     Indication: Hyperphosphataemia
     Route: 048
  15. SARPOGRELATE [Concomitant]
     Active Substance: SARPOGRELATE
     Route: 048
  16. OXAROL [Concomitant]
     Active Substance: MAXACALCITOL
     Route: 042
     Dates: end: 20170210
  17. ONEALFA [Concomitant]
     Active Substance: ALFACALCIDOL
     Route: 048
     Dates: start: 20170313
  18. PLAVIX [Concomitant]
     Active Substance: CLOPIDOGREL BISULFATE
     Route: 048
     Dates: start: 20170411
  19. DARBEPOETIN ALFA [Concomitant]
     Active Substance: DARBEPOETIN ALFA
     Dates: start: 20170811, end: 20170818
  20. DARBEPOETIN ALFA [Concomitant]
     Active Substance: DARBEPOETIN ALFA
     Dates: start: 20170825, end: 20170907
  21. DARBEPOETIN ALFA [Concomitant]
     Active Substance: DARBEPOETIN ALFA
     Dates: start: 20170908, end: 20170921
  22. DARBEPOETIN ALFA [Concomitant]
     Active Substance: DARBEPOETIN ALFA
     Dates: start: 20171208, end: 20171221
  23. DARBEPOETIN ALFA [Concomitant]
     Active Substance: DARBEPOETIN ALFA
     Dates: start: 20171222, end: 20180208

REACTIONS (12)
  - Shunt occlusion [Recovered/Resolved]
  - Serum ferritin increased [Recovered/Resolved]
  - Bronchitis [Recovered/Resolved]
  - Shunt stenosis [Recovered/Resolved]
  - Pyrexia [Not Recovered/Not Resolved]
  - Nasopharyngitis [Recovered/Resolved]
  - Peripheral arterial occlusive disease [Unknown]
  - Condition aggravated [Unknown]
  - Wound [Recovered/Resolved]
  - Rash [Recovering/Resolving]
  - Tympanic membrane perforation [Recovered/Resolved]
  - Paronychia [Recovering/Resolving]

NARRATIVE: CASE EVENT DATE: 20160928
